FAERS Safety Report 23569596 (Version 1)
Quarter: 2024Q1

REPORT INFORMATION
  Report Type: Spontaneous
  Country: DE (occurrence: None)
  Receive Date: 20240227
  Receipt Date: 20240227
  Transmission Date: 20240410
  Serious: Yes (Disabling)
  Sender: FDA-Public Use
  Company Number: DE-ROCHE-3511678

PATIENT
  Age: 44 Year
  Sex: Female

DRUGS (1)
  1. OCREVUS [Suspect]
     Active Substance: OCRELIZUMAB
     Indication: Relapsing multiple sclerosis
     Dosage: 2ND INFUSION ON 18/FEB/2023
     Route: 065
     Dates: start: 20230214

REACTIONS (4)
  - Progressive relapsing multiple sclerosis [Unknown]
  - Paraparesis [Recovering/Resolving]
  - Anal incontinence [Not Recovered/Not Resolved]
  - Urinary incontinence [Recovering/Resolving]

NARRATIVE: CASE EVENT DATE: 20230501
